FAERS Safety Report 12126648 (Version 2)
Quarter: 2016Q1

REPORT INFORMATION
  Report Type: Spontaneous
  Country: IL (occurrence: IL)
  Receive Date: 20160229
  Receipt Date: 20160308
  Transmission Date: 20160526
  Serious: Yes (Other)
  Sender: FDA-Public Use
  Company Number: IL-GLAXOSMITHKLINE-IL2016GSK028656

PATIENT
  Age: 73 Year
  Sex: Male

DRUGS (4)
  1. VENTOLIN [Concomitant]
     Active Substance: ALBUTEROL SULFATE
  2. RELVAR ELLIPTA [Suspect]
     Active Substance: FLUTICASONE FUROATE\VILANTEROL TRIFENATATE
     Indication: BRONCHITIS
     Dosage: 184 UNK, QD
     Route: 055
     Dates: start: 2016, end: 2016
  3. LOSARDEX [Concomitant]
     Active Substance: LOSARTAN POTASSIUM
     Dosage: 50 MG, UNK
  4. RELVAR ELLIPTA [Suspect]
     Active Substance: FLUTICASONE FUROATE\VILANTEROL TRIFENATATE
     Indication: UPPER RESPIRATORY TRACT INFECTION

REACTIONS (1)
  - Angina pectoris [Recovered/Resolved]

NARRATIVE: CASE EVENT DATE: 201602
